FAERS Safety Report 9168911 (Version 1)
Quarter: 2013Q1

REPORT INFORMATION
  Report Type: Spontaneous
  Country: US (occurrence: None)
  Receive Date: 20130314
  Receipt Date: 20130314
  Transmission Date: 20140127
  Serious: Yes (Disabling)
  Sender: FDA-Public Use
  Company Number: None

PATIENT
  Sex: Female
  Weight: 58.97 kg

DRUGS (1)
  1. DILTIAZEM [Suspect]
     Dosage: 1 PILL  1 A DAY

REACTIONS (6)
  - Balance disorder [None]
  - Fall [None]
  - Skin injury [None]
  - Arthritis [None]
  - Bladder disorder [None]
  - Activities of daily living impaired [None]
